FAERS Safety Report 9534779 (Version 2)
Quarter: 2013Q3

REPORT INFORMATION
  Report Type: Spontaneous
  Country: US (occurrence: US)
  Receive Date: 20130918
  Receipt Date: 20130918
  Transmission Date: 20140515
  Serious: No
  Sender: FDA-Public Use
  Company Number: US-PURDUE-USA-2011-0079533

PATIENT
  Age: 26 Year
  Sex: Male

DRUGS (4)
  1. BUTRANS [Suspect]
     Indication: PAIN
     Dosage: 5 MCG, Q1H
     Route: 062
     Dates: start: 20111202, end: 20111205
  2. VICODIN [Concomitant]
     Indication: BREAKTHROUGH PAIN
     Dosage: 5 MG, Q6- 8H
     Dates: end: 20120112
  3. GABAPENTIN [Concomitant]
     Indication: NEURALGIA
     Dosage: 300 MG, TID
  4. MOBIC [Concomitant]
     Indication: ARTHRALGIA
     Dosage: 15 MG, QD PRN

REACTIONS (3)
  - Road traffic accident [Unknown]
  - Dizziness [Unknown]
  - Loss of consciousness [Unknown]
